FAERS Safety Report 4633139-6 (Version None)
Quarter: 2005Q2

REPORT INFORMATION
  Report Type: 
  Country: None (occurrence: None)
  Receive Date: 20050412
  Receipt Date: 20050331
  Transmission Date: 20051028
  Serious: Yes (Hospitalization)
  Sender: FDA-Public Use
  Company Number: FR-GLAXOSMITHKLINE-B0376763A

PATIENT
  Age: 76 Year
  Sex: Female

DRUGS (8)
  1. DIGOXIN [Suspect]
     Dosage: .25MG PER DAY
     Route: 065
  2. FUSIDIC ACID [Concomitant]
     Dosage: 750MG PER DAY
     Route: 065
  3. ALENDRONATE SODIUM [Concomitant]
     Dosage: 10MG PER DAY
     Route: 065
  4. AMIODARONE [Concomitant]
     Route: 065
  5. CAPTOPRIL [Concomitant]
     Dosage: 50MG PER DAY
     Route: 065
  6. POTASSIUM CHLORIDE [Concomitant]
     Dosage: 2G PER DAY
     Route: 065
  7. CARBOCYSTEINE [Concomitant]
     Route: 065
  8. FLUINDIONE [Concomitant]
     Dosage: 10MG PER DAY
     Route: 065

REACTIONS (6)
  - CARDIAC ENZYMES INCREASED [None]
  - CONTUSION [None]
  - FALL [None]
  - HEPATIC ENZYME INCREASED [None]
  - THERAPEUTIC AGENT TOXICITY [None]
  - VOMITING [None]
